FAERS Safety Report 4464832-6 (Version None)
Quarter: 2004Q4

REPORT INFORMATION
  Report Type: 
  Country: None (occurrence: None)
  Receive Date: 20041004
  Receipt Date: 20031020
  Transmission Date: 20050328
  Serious: No
  Sender: FDA-Public Use
  Company Number: 352017

PATIENT
  Age: 66 Year
  Sex: Female

DRUGS (3)
  1. COREG [Suspect]
     Indication: CARDIOMYOPATHY
     Dosage: 6.25MG TWICE PER DAY
     Route: 048
     Dates: start: 20030101
  2. HORMONES [Concomitant]
  3. LOTREL [Concomitant]

REACTIONS (3)
  - CHEST DISCOMFORT [None]
  - FATIGUE [None]
  - HYPOTENSION [None]
